FAERS Safety Report 23774562 (Version 1)
Quarter: 2024Q2

REPORT INFORMATION
  Report Type: Spontaneous
  Country: US (occurrence: US)
  Receive Date: 20240423
  Receipt Date: 20240423
  Transmission Date: 20240716
  Serious: No
  Sender: FDA-Public Use
  Company Number: US-SA-SAC20240418001214

PATIENT
  Age: 65 Year
  Sex: Male
  Weight: 112.9 kg

DRUGS (1)
  1. DUPIXENT [Suspect]
     Active Substance: DUPILUMAB
     Indication: Asthma
     Dosage: 300 MG, QOW
     Route: 058
     Dates: start: 20240314

REACTIONS (3)
  - Productive cough [Not Recovered/Not Resolved]
  - Wheezing [Not Recovered/Not Resolved]
  - Fungal foot infection [Not Recovered/Not Resolved]

NARRATIVE: CASE EVENT DATE: 20240101
